FAERS Safety Report 4296314-9 (Version None)
Quarter: 2004Q1

REPORT INFORMATION
  Report Type: 
  Country: None (occurrence: None)
  Receive Date: 20040217
  Receipt Date: 20031014
  Transmission Date: 20041129
  Serious: No
  Sender: FDA-Public Use
  Company Number: US-GLAXOSMITHKLINE-A0430310A

PATIENT
  Sex: Male

DRUGS (1)
  1. LAMICTAL [Suspect]
     Indication: HEADACHE
     Dosage: 200MG TWICE PER DAY
     Route: 048

REACTIONS (2)
  - CHROMATURIA [None]
  - PROSTATIC SPECIFIC ANTIGEN ABNORMAL [None]
